FAERS Safety Report 5367795-4 (Version None)
Quarter: 2007Q2

REPORT INFORMATION
  Report Type: 
  Country: None (occurrence: None)
  Receive Date: 20070619
  Receipt Date: 20070604
  Transmission Date: 20071010
  Serious: Yes (Life-Threatening, Hospitalization)
  Sender: FDA-Public Use
  Company Number: DSA_29938_2007

PATIENT
  Age: 53 Year
  Sex: Female

DRUGS (2)
  1. TAVOR [Suspect]
     Dosage: (50 DF 1X ORAL)
     Route: 048
     Dates: start: 20070516, end: 20070516
  2. GLADEM            (SERTRALINE HCL) [Suspect]
     Dosage: (1000 MG 1X ORAL)
     Route: 048
     Dates: start: 20070516, end: 20070516

REACTIONS (6)
  - HYPOTENSION [None]
  - MULTIPLE DRUG OVERDOSE [None]
  - RESPIRATORY DEPRESSION [None]
  - SOMNOLENCE [None]
  - SUICIDE ATTEMPT [None]
  - TACHYCARDIA [None]
